FAERS Safety Report 9215151 (Version 2)
Quarter: 2013Q2

REPORT INFORMATION
  Report Type: Spontaneous
  Country: US (occurrence: US)
  Receive Date: 20130405
  Receipt Date: 20130407
  Transmission Date: 20140414
  Serious: No
  Sender: FDA-Public Use
  Company Number: US-009507513-1304USA002684

PATIENT
  Sex: Male

DRUGS (1)
  1. DR. SCHOLL^S FREEZE AWAY COMMON + PLANTAR WART REMOVER [Suspect]
     Indication: PRODUCT USED FOR UNKNOWN INDICATION
     Dosage: UNK, QOW
     Route: 061

REACTIONS (2)
  - Therapeutic product ineffective [Unknown]
  - Drug administration error [Unknown]
